FAERS Safety Report 4931052-8 (Version None)
Quarter: 2006Q1

REPORT INFORMATION
  Report Type: 
  Country: None (occurrence: None)
  Receive Date: 20060302
  Receipt Date: 20050614
  Transmission Date: 20060701
  Serious: Yes (Hospitalization)
  Sender: FDA-Public Use
  Company Number: US-MERCK-0506USA02154

PATIENT
  Age: 45 Year
  Sex: Male

DRUGS (9)
  1. VIOXX [Suspect]
     Indication: MONARTHRITIS
     Route: 048
     Dates: start: 20000101, end: 20040901
  2. VIOXX [Suspect]
     Route: 048
  3. VIOXX [Suspect]
     Indication: SPONDYLITIS
     Route: 048
     Dates: start: 20000101, end: 20040901
  4. VIOXX [Suspect]
     Route: 048
  5. COUMADIN [Concomitant]
     Route: 065
  6. LORAZEPAM [Concomitant]
     Route: 065
  7. ZOLOFT [Concomitant]
     Route: 065
  8. PRILOSEC [Concomitant]
     Route: 065
  9. VIAGRA [Concomitant]
     Route: 065

REACTIONS (18)
  - ABDOMINAL PAIN [None]
  - ALCOHOL POISONING [None]
  - ASTHENIA [None]
  - BACK INJURY [None]
  - BRONCHITIS [None]
  - CHEST PAIN [None]
  - DYSPNOEA [None]
  - FATIGUE [None]
  - GASTRITIS [None]
  - HYPERHIDROSIS [None]
  - HYPOAESTHESIA [None]
  - MUSCULOSKELETAL CHEST PAIN [None]
  - NAUSEA [None]
  - NECK INJURY [None]
  - PAIN IN EXTREMITY [None]
  - PALPITATIONS [None]
  - RADICULOPATHY [None]
  - ROAD TRAFFIC ACCIDENT [None]
